FAERS Safety Report 15239014 (Version 1)
Quarter: 2018Q3

REPORT INFORMATION
  Report Type: Spontaneous
  Country: US (occurrence: US)
  Receive Date: 20180710
  Receipt Date: 20180710
  Transmission Date: 20181010
  Serious: Yes (Disabling)
  Sender: FDA-Public Use
  Company Number: None

PATIENT
  Age: 75 Month
  Sex: Female
  Weight: 99.79 kg

DRUGS (4)
  1. PROLIA [Suspect]
     Active Substance: DENOSUMAB
     Dates: start: 201706, end: 201712
  2. VITAMIN PILL [Concomitant]
  3. PESSARY [Concomitant]
  4. CALCIUM WITH D?3 [Concomitant]

REACTIONS (8)
  - Arthralgia [None]
  - Rash [None]
  - Dizziness [None]
  - Condition aggravated [None]
  - Headache [None]
  - Hypoacusis [None]
  - Joint swelling [None]
  - Pancreatic cyst [None]

NARRATIVE: CASE EVENT DATE: 201707
